FAERS Safety Report 9191356 (Version 1)
Quarter: 2013Q1

REPORT INFORMATION
  Report Type: Spontaneous
  Country: US (occurrence: US)
  Receive Date: 20130326
  Receipt Date: 20130326
  Transmission Date: 20140127
  Serious: No
  Sender: FDA-Public Use
  Company Number: US-ASTRAZENECA-2013SE14730

PATIENT
  Age: 65 Year
  Sex: Male

DRUGS (2)
  1. NEXIUM [Suspect]
     Indication: GASTRIC DISORDER
     Route: 048
  2. PRILOSEC [Suspect]
     Indication: GASTRIC DISORDER
     Route: 048

REACTIONS (4)
  - Gastrooesophageal reflux disease [Unknown]
  - Adverse event [Unknown]
  - Intentional drug misuse [Unknown]
  - Drug ineffective [Unknown]
